FAERS Safety Report 12617229 (Version 2)
Quarter: 2016Q3

REPORT INFORMATION
  Report Type: Spontaneous
  Country: US (occurrence: US)
  Receive Date: 20160803
  Receipt Date: 20160928
  Transmission Date: 20161109
  Serious: No
  Sender: FDA-Public Use
  Company Number: US-JNJFOC-20160715804

PATIENT
  Age: 21 Year
  Sex: Male

DRUGS (2)
  1. PREZCOBIX [Suspect]
     Active Substance: COBICISTAT\DARUNAVIR ETHANOLATE
     Indication: HIV INFECTION
     Dosage: 1/2 TABLET IN THE MORNING AND 1/2 TABLET IN THE EVENING
     Route: 048
     Dates: start: 201604
  2. DOLUTEGRAVIR [Concomitant]
     Active Substance: DOLUTEGRAVIR
     Indication: HIV INFECTION
     Route: 065

REACTIONS (2)
  - Viral load [Unknown]
  - Underweight [Recovering/Resolving]

NARRATIVE: CASE EVENT DATE: 201607
